FAERS Safety Report 12887284 (Version 1)
Quarter: 2016Q4

REPORT INFORMATION
  Report Type: Spontaneous
  Country: GR (occurrence: GR)
  Receive Date: 20161026
  Receipt Date: 20161026
  Transmission Date: 20170207
  Serious: Yes (Hospitalization)
  Sender: FDA-Public Use
  Company Number: GR-ALLERGAN-1673376US

PATIENT
  Age: 80 Year
  Sex: Male

DRUGS (1)
  1. GANFORT UD [Suspect]
     Active Substance: BIMATOPROST\TIMOLOL MALEATE
     Indication: GLAUCOMA
     Route: 047

REACTIONS (2)
  - Aortic stenosis [Recovered/Resolved]
  - Bradycardia [Recovered/Resolved]
